FAERS Safety Report 6716000-2 (Version None)
Quarter: 2010Q2

REPORT INFORMATION
  Report Type: 
  Country: None (occurrence: None)
  Receive Date: 20100426
  Receipt Date: 20100112
  Transmission Date: 20101027
  Serious: Yes (Other)
  Sender: FDA-Public Use
  Company Number: 2009BI030454

PATIENT
  Sex: Male

DRUGS (2)
  1. TYSABRI [Suspect]
     Indication: MULTIPLE SCLEROSIS
     Dosage: 300 MG;QM;IV
     Route: 042
     Dates: start: 20090914
  2. AVONEX [Concomitant]

REACTIONS (9)
  - ABDOMINAL PAIN UPPER [None]
  - CHEST X-RAY ABNORMAL [None]
  - COGNITIVE DISORDER [None]
  - DEPRESSED MOOD [None]
  - HEADACHE [None]
  - LUNG DISORDER [None]
  - MEMORY IMPAIRMENT [None]
  - PAIN [None]
  - SUICIDE ATTEMPT [None]
